FAERS Safety Report 16074352 (Version 1)
Quarter: 2019Q1

REPORT INFORMATION
  Report Type: Spontaneous
  Country: ES (occurrence: ES)
  Receive Date: 20190314
  Receipt Date: 20190314
  Transmission Date: 20190418
  Serious: Yes (Other)
  Sender: FDA-Public Use
  Company Number: ES-MYLANLABS-2019M1023370

PATIENT
  Age: 46 Year
  Sex: Female
  Weight: 58 kg

DRUGS (2)
  1. DYMISTA [Suspect]
     Active Substance: AZELASTINE HYDROCHLORIDE\FLUTICASONE PROPIONATE
     Indication: NASAL OBSTRUCTION
     Dosage: 1 PUFF IN EACH NASAL ORIFICE ONCE A DAY
     Route: 045
     Dates: start: 20180601
  2. FOSTERNEXT HALER [Concomitant]
     Indication: ASTHMA
     Dosage: 2 PUFFS 2 VECES AL D?A
     Route: 055
     Dates: start: 20150605

REACTIONS (4)
  - Somnolence [Not Recovered/Not Resolved]
  - Dry mouth [Not Recovered/Not Resolved]
  - Depressed level of consciousness [Not Recovered/Not Resolved]
  - Fatigue [Not Recovered/Not Resolved]

NARRATIVE: CASE EVENT DATE: 20180601
